FAERS Safety Report 9527988 (Version 1)
Quarter: 2013Q3

REPORT INFORMATION
  Report Type: Spontaneous
  Country: CA (occurrence: CA)
  Receive Date: 20130917
  Receipt Date: 20130917
  Transmission Date: 20140515
  Serious: Yes (Death)
  Sender: FDA-Public Use
  Company Number: CA-ROCHE-1274947

PATIENT
  Age: 87 Year
  Sex: Male
  Weight: 59.02 kg

DRUGS (5)
  1. RITUXAN [Suspect]
     Indication: PRODUCT USED FOR UNKNOWN INDICATION
     Route: 042
  2. CHOLECALCIFEROL [Concomitant]
     Route: 065
  3. COVERSYL [Concomitant]
  4. CYKLOKAPRON [Concomitant]
     Route: 065
  5. PREDNISONE [Concomitant]

REACTIONS (6)
  - Arthralgia [Fatal]
  - Cough [Fatal]
  - Dyspnoea [Fatal]
  - Eye swelling [Fatal]
  - Haemoptysis [Fatal]
  - Oedema peripheral [Fatal]
